FAERS Safety Report 10636273 (Version 24)
Quarter: 2025Q1

REPORT INFORMATION
  Report Type: Report from Study
  Country: CA (occurrence: CA)
  Receive Date: 20141206
  Receipt Date: 20250325
  Transmission Date: 20250408
  Serious: Yes (Hospitalization, Other)
  Sender: ROCHE
  Company Number: CA-ROCHE-1462731

PATIENT
  Age: 59 Year
  Sex: Female
  Weight: 77.11 kg

DRUGS (23)
  1. RITUXAN [Suspect]
     Active Substance: RITUXIMAB
     Indication: Pemphigus
     Dosage: LATEST INFUSION OF RITUXIMAB RECEIVED ON 30/AUG/2017.
     Route: 042
     Dates: start: 20140826, end: 20160328
  2. RITUXAN [Suspect]
     Active Substance: RITUXIMAB
     Route: 042
     Dates: start: 20160329, end: 20160505
  3. RITUXAN [Suspect]
     Active Substance: RITUXIMAB
     Route: 042
     Dates: start: 20160506, end: 20160519
  4. RITUXAN [Suspect]
     Active Substance: RITUXIMAB
     Route: 042
     Dates: start: 20160520, end: 20171114
  5. RITUXAN [Suspect]
     Active Substance: RITUXIMAB
     Route: 042
     Dates: start: 20190506, end: 20221020
  6. RITUXAN [Suspect]
     Active Substance: RITUXIMAB
     Route: 042
  7. RITUXAN [Suspect]
     Active Substance: RITUXIMAB
     Route: 042
  8. RITUXAN [Suspect]
     Active Substance: RITUXIMAB
     Route: 042
  9. RITUXAN [Suspect]
     Active Substance: RITUXIMAB
     Route: 042
  10. PREDNISONE [Suspect]
     Active Substance: PREDNISONE
     Indication: Pemphigus
     Route: 065
  11. CORTISONE [Suspect]
     Active Substance: CORTISONE
     Indication: Product used for unknown indication
     Route: 065
  12. PROLIA [Suspect]
     Active Substance: DENOSUMAB
     Indication: Bone density abnormal
     Route: 065
     Dates: end: 2020
  13. DIPHENHYDRAMINE HYDROCHLORIDE [Concomitant]
     Active Substance: DIPHENHYDRAMINE HYDROCHLORIDE
     Route: 048
     Dates: start: 20140826
  14. DIPHENHYDRAMINE HYDROCHLORIDE [Concomitant]
     Active Substance: DIPHENHYDRAMINE HYDROCHLORIDE
     Route: 048
     Dates: start: 20140930
  15. ACETAMINOPHEN [Concomitant]
     Active Substance: ACETAMINOPHEN
     Route: 048
     Dates: start: 20140826
  16. ACETAMINOPHEN [Concomitant]
     Active Substance: ACETAMINOPHEN
     Route: 048
     Dates: start: 20141222
  17. METHYLPREDNISOLONE [Concomitant]
     Active Substance: METHYLPREDNISOLONE
     Route: 042
     Dates: start: 20140826
  18. IMURAN [Concomitant]
     Active Substance: AZATHIOPRINE
  19. NORVASC [Concomitant]
     Active Substance: AMLODIPINE BESYLATE
  20. ATENOLOL [Concomitant]
     Active Substance: ATENOLOL
  21. Forteo injections [Concomitant]
     Dates: start: 2020
  22. HUMAN IMMUNOGLOBULIN G [Concomitant]
     Active Substance: HUMAN IMMUNOGLOBULIN G
     Indication: Pemphigus
  23. VITAMIN D [Concomitant]
     Active Substance: VITAMIN D NOS

REACTIONS (33)
  - Hypertension [Unknown]
  - Osteoporosis [Unknown]
  - Fall [Unknown]
  - Spinal fracture [Unknown]
  - Mobility decreased [Unknown]
  - Faecaloma [Unknown]
  - Pemphigus [Not Recovered/Not Resolved]
  - Abdominal pain [Not Recovered/Not Resolved]
  - Back pain [Not Recovered/Not Resolved]
  - Weight increased [Unknown]
  - Faeces discoloured [Not Recovered/Not Resolved]
  - Constipation [Not Recovered/Not Resolved]
  - Dry mouth [Not Recovered/Not Resolved]
  - Burning sensation [Not Recovered/Not Resolved]
  - Insomnia [Not Recovered/Not Resolved]
  - Blood pressure diastolic increased [Unknown]
  - Underdose [Unknown]
  - Spinal fracture [Unknown]
  - Eyelid ptosis [Not Recovered/Not Resolved]
  - Cataract [Not Recovered/Not Resolved]
  - B-lymphocyte count decreased [Unknown]
  - Off label use [Unknown]
  - Fatigue [Not Recovered/Not Resolved]
  - Bone disorder [Not Recovered/Not Resolved]
  - Cyst [Unknown]
  - Blood pressure systolic increased [Unknown]
  - Blood pressure systolic abnormal [Unknown]
  - Drug ineffective [Unknown]
  - Ill-defined disorder [Unknown]
  - Ear dryness [Unknown]
  - Skin exfoliation [Unknown]
  - Blister [Unknown]
  - Pemphigus [Unknown]

NARRATIVE: CASE EVENT DATE: 20140901
